FAERS Safety Report 13656909 (Version 1)
Quarter: 2017Q2

REPORT INFORMATION
  Report Type: Spontaneous
  Country: US (occurrence: US)
  Receive Date: 20170615
  Receipt Date: 20170615
  Transmission Date: 20170830
  Serious: Yes (Other)
  Sender: FDA-Public Use
  Company Number: US-DEPOMED, INC.-US-2017DEP001200

PATIENT
  Sex: Female

DRUGS (4)
  1. BUPIVACAINE. [Suspect]
     Active Substance: BUPIVACAINE
     Dosage: UNK
     Route: 008
  2. BUPIVACAINE. [Suspect]
     Active Substance: BUPIVACAINE
     Indication: CAESAREAN SECTION
     Dosage: UNK
     Route: 008
  3. FENTANYL. [Suspect]
     Active Substance: FENTANYL
     Indication: CAESAREAN SECTION
     Dosage: UNK
     Route: 008
  4. BUPIVACAINE. [Suspect]
     Active Substance: BUPIVACAINE
     Dosage: HYPERBARIC
     Route: 008

REACTIONS (2)
  - Spinal anaesthesia [Unknown]
  - Inadequate analgesia [Unknown]
